FAERS Safety Report 9858419 (Version 2)
Quarter: 2014Q1

REPORT INFORMATION
  Report Type: Spontaneous
  Country: PL (occurrence: PL)
  Receive Date: 20140131
  Receipt Date: 20140305
  Transmission Date: 20141002
  Serious: Yes (Hospitalization)
  Sender: FDA-Public Use
  Company Number: PL-SA-2014SA010868

PATIENT
  Age: 31 Year
  Sex: Male

DRUGS (12)
  1. CHLOROQUINE (SALT NOT SPECIFIED) [Suspect]
     Indication: SYSTEMIC LUPUS ERYTHEMATOSUS
     Route: 065
  2. CHLOROQUINE (SALT NOT SPECIFIED) [Suspect]
     Indication: SYSTEMIC LUPUS ERYTHEMATOSUS
     Route: 065
  3. METHYLPREDNISOLONE [Concomitant]
     Indication: SYSTEMIC LUPUS ERYTHEMATOSUS
  4. METHYLPREDNISOLONE [Concomitant]
     Indication: SYSTEMIC LUPUS ERYTHEMATOSUS
  5. METHYLPREDNISOLONE [Concomitant]
     Indication: SYSTEMIC LUPUS ERYTHEMATOSUS
  6. METHYLPREDNISOLONE [Concomitant]
     Indication: SYSTEMIC LUPUS ERYTHEMATOSUS
  7. METHYLPREDNISOLONE [Concomitant]
     Indication: SYSTEMIC LUPUS ERYTHEMATOSUS
  8. METHYLPREDNISOLONE [Concomitant]
     Indication: SYSTEMIC LUPUS ERYTHEMATOSUS
  9. HYDROXYCHLOROQUINE [Concomitant]
     Indication: SYSTEMIC LUPUS ERYTHEMATOSUS
  10. LAMOTRIGINE [Concomitant]
  11. LAMOTRIGINE [Concomitant]
  12. CLORAZEPATE DIPOTASSIUM [Concomitant]

REACTIONS (13)
  - Bipolar disorder [Recovering/Resolving]
  - Depression [Recovering/Resolving]
  - Psychotic disorder [Recovering/Resolving]
  - Mania [Recovering/Resolving]
  - Feelings of worthlessness [Recovering/Resolving]
  - Psychomotor retardation [Recovering/Resolving]
  - Negative thoughts [Recovering/Resolving]
  - Decreased interest [Recovering/Resolving]
  - Agitation [Recovering/Resolving]
  - Hallucination, visual [Recovering/Resolving]
  - Affective disorder [Recovering/Resolving]
  - Suicidal ideation [Recovering/Resolving]
  - Hallucination, auditory [Recovering/Resolving]
